FAERS Safety Report 5012383-2 (Version None)
Quarter: 2006Q2

REPORT INFORMATION
  Report Type: 
  Country: None (occurrence: None)
  Receive Date: 20060411
  Receipt Date: 20060125
  Transmission Date: 20061013
  Serious: Yes (Other)
  Sender: FDA-Public Use
  Company Number: 2006013769

PATIENT
  Sex: Female

DRUGS (1)
  1. DEPO-SUBQ PROVERA 104 [Suspect]
     Indication: CONTRACEPTION
     Dosage: 104 MG (104 MG, 1ST INJECTION, EVERY 3 MONTHS), SUBCUTANEOUS
     Route: 058
     Dates: start: 20060123, end: 20060123

REACTIONS (5)
  - DRUG ADMINISTRATION ERROR [None]
  - HYPERSENSITIVITY [None]
  - INJECTION SITE PAIN [None]
  - INJECTION SITE REACTION [None]
  - THROAT TIGHTNESS [None]
